FAERS Safety Report 25301829 (Version 1)
Quarter: 2025Q2

REPORT INFORMATION
  Report Type: Report from Study
  Country: US (occurrence: US)
  Receive Date: 20250512
  Receipt Date: 20250512
  Transmission Date: 20250717
  Serious: Yes (Other)
  Sender: ABBVIE
  Company Number: US-ABBVIE-6269410

PATIENT
  Age: 44 Year
  Sex: Female

DRUGS (1)
  1. SKYRIZI [Suspect]
     Active Substance: RISANKIZUMAB-RZAA
     Indication: Crohn^s disease
     Route: 058
     Dates: start: 20241111

REACTIONS (6)
  - Knee operation [Recovering/Resolving]
  - Headache [Recovering/Resolving]
  - Endometriosis [Unknown]
  - Arthralgia [Unknown]
  - Meniscus injury [Unknown]
  - Exostosis [Unknown]

NARRATIVE: CASE EVENT DATE: 20250122
